FAERS Safety Report 10592835 (Version 1)
Quarter: 2014Q4

REPORT INFORMATION
  Report Type: Spontaneous
  Country: US (occurrence: None)
  Receive Date: 20141118
  Receipt Date: 20141118
  Transmission Date: 20150529
  Serious: Yes (Hospitalization)
  Sender: FDA-Public Use
  Company Number: None

PATIENT
  Age: 48 Year
  Sex: Female
  Weight: 90.27 kg

DRUGS (1)
  1. LISINOPRIL LUPIN PHRM [Suspect]
     Active Substance: LISINOPRIL
     Indication: HYPERTENSION
     Dosage: 20 MG 1 PILL ONCE DAILY BY MOUTH
     Route: 048
     Dates: start: 20120220, end: 20140106

REACTIONS (2)
  - Local swelling [None]
  - Small intestinal obstruction [None]

NARRATIVE: CASE EVENT DATE: 20131126
